FAERS Safety Report 21733194 (Version 1)
Quarter: 2022Q4

REPORT INFORMATION
  Report Type: Spontaneous
  Country: NL (occurrence: NL)
  Receive Date: 20221215
  Receipt Date: 20221215
  Transmission Date: 20230112
  Serious: Yes (Hospitalization)
  Sender: FDA-Public Use
  Company Number: NL-MYLANLABS-2022M1139128

PATIENT
  Age: 36 Year
  Sex: Male

DRUGS (5)
  1. INSULIN ASPART [Suspect]
     Active Substance: INSULIN ASPART
     Indication: Type 1 diabetes mellitus
     Dosage: UNK, BID (DOSE: 18U SHORT ACTING INSULIN ASPART)
     Route: 058
  2. INSULIN GLARGINE [Suspect]
     Active Substance: INSULIN GLARGINE
     Indication: Type 1 diabetes mellitus
     Dosage: UNK, INTRAVENOUS BOLUS (DOSE: 0.1 U/KG BOLUS)
     Route: 042
  3. INSULIN GLARGINE [Suspect]
     Active Substance: INSULIN GLARGINE
     Dosage: UNK, QH, INTRAVENOUS BOLUS (DOSE: 0.1 U/KG)
     Route: 042
  4. SODIUM CHLORIDE [Suspect]
     Active Substance: SODIUM CHLORIDE
     Indication: Vehicle solution use
     Dosage: UNK, QH, INFUSION (DOSE: 500-1000ML FOR FIRST 2-4HOURS)
     Route: 042
  5. SODIUM CHLORIDE [Suspect]
     Active Substance: SODIUM CHLORIDE
     Dosage: 4000 MILLILITER, QD (INFUSION)
     Route: 042

REACTIONS (3)
  - Drug ineffective [Unknown]
  - Blood osmolarity decreased [Recovered/Resolved]
  - Somnolence [Recovered/Resolved]
